FAERS Safety Report 5067700-4 (Version None)
Quarter: 2006Q3

REPORT INFORMATION
  Report Type: 
  Country: None (occurrence: None)
  Receive Date: 20060712
  Receipt Date: 20060405
  Transmission Date: 20061208
  Serious: No
  Sender: FDA-Public Use
  Company Number: A03200602116

PATIENT
  Age: 72 Year
  Sex: Male

DRUGS (5)
  1. UROXATRAL [Suspect]
     Indication: PROSTATE EXAMINATION ABNORMAL
     Dosage: 10 MG OD - ORAL
     Route: 048
     Dates: start: 20060403, end: 20060401
  2. TELMISARTAN [Concomitant]
  3. TAMSULOSIN HYDROCHLORIDE [Concomitant]
  4. ASPIRIN [Concomitant]
  5. ERLOTINIB [Concomitant]

REACTIONS (2)
  - HAEMATOSPERMIA [None]
  - INSOMNIA [None]
